FAERS Safety Report 15027789 (Version 2)
Quarter: 2019Q1

REPORT INFORMATION
  Report Type: Spontaneous
  Country: US (occurrence: US)
  Receive Date: 20180619
  Receipt Date: 20190319
  Transmission Date: 20190417
  Serious: No
  Sender: FDA-Public Use
  Company Number: US-PFIZER INC-2018246371

PATIENT
  Sex: Male

DRUGS (1)
  1. LYRICA [Suspect]
     Active Substance: PREGABALIN
     Indication: POLYNEUROPATHY
     Dosage: 75 MG, 2X/DAY
     Route: 048

REACTIONS (5)
  - Back disorder [Unknown]
  - Hypoaesthesia [Unknown]
  - Burning sensation [Unknown]
  - Chronic obstructive pulmonary disease [Unknown]
  - Gait disturbance [Unknown]
